FAERS Safety Report 6956982-7 (Version None)
Quarter: 2010Q3

REPORT INFORMATION
  Report Type: 
  Country: None (occurrence: None)
  Receive Date: 20100827
  Receipt Date: 20100827
  Transmission Date: 20110219
  Serious: Yes (Other)
  Sender: FDA-Public Use
  Company Number: None

PATIENT
  Age: 60 Year
  Sex: Female
  Weight: 79.3795 kg

DRUGS (1)
  1. ZOLOFT [Suspect]
     Indication: DEPRESSION
     Dosage: 1 TABLET IN MORNING
     Dates: start: 20100821, end: 20100821

REACTIONS (6)
  - DIARRHOEA [None]
  - EYE DISORDER [None]
  - FEELING ABNORMAL [None]
  - HUNGER [None]
  - NAUSEA [None]
  - SINUS DISORDER [None]
